FAERS Safety Report 7385147-2 (Version None)
Quarter: 2011Q1

REPORT INFORMATION
  Report Type: 
  Country: None (occurrence: None)
  Receive Date: 20110330
  Receipt Date: 20110325
  Transmission Date: 20110831
  Serious: Yes (Disabling, Other)
  Sender: FDA-Public Use
  Company Number: US-PFIZER INC-2011067364

PATIENT
  Sex: Male
  Weight: 106.5 kg

DRUGS (37)
  1. ZOCOR [Suspect]
     Dosage: UNK
  2. PROSCAR [Suspect]
     Dosage: UNK
  3. VICODIN [Concomitant]
     Dosage: UNK
  4. ALLOPURINOL [Concomitant]
     Dosage: 300 MG, 1X/DAY
  5. THERA TEARS [Concomitant]
     Dosage: UNK
  6. BILBERRY [Concomitant]
     Dosage: 1000 MG, UNK
  7. TRAMADOL HYDROCHLORIDE [Suspect]
     Dosage: UNK
  8. REGLAN [Suspect]
     Dosage: UNK
  9. ZETIA [Suspect]
     Dosage: UNK
  10. PROZAC [Suspect]
     Dosage: UNK
  11. LUVOX [Suspect]
     Dosage: UNK
  12. POTASSIUM CHLORIDE [Concomitant]
     Dosage: 20 MG, UNK
  13. FUROSEMIDE [Concomitant]
     Indication: DIURETIC THERAPY
     Dosage: UNK
  14. COREG [Suspect]
     Indication: CARDIAC DISORDER
     Dosage: UNK
  15. ACETYLSALICYLIC ACID [Concomitant]
     Indication: CARDIAC DISORDER
     Dosage: 50 MG, UNK
  16. PRAVASTATIN [Concomitant]
     Dosage: 40 MG, 1X/DAY
  17. ALPRAZOLAM [Suspect]
     Dosage: UNK
  18. LOTRIMIN [Suspect]
     Dosage: UNK
  19. CYCLOSPORINE [Suspect]
     Dosage: UNK
  20. LOSARTAN [Concomitant]
     Indication: CARDIAC DISORDER
     Dosage: UNK
  21. DIGOXIN [Concomitant]
     Dosage: UNK
  22. OXYCODONE [Concomitant]
     Indication: BACK PAIN
     Dosage: UNK
  23. LANTUS [Concomitant]
     Indication: DIABETES MELLITUS
     Dosage: 12 IU, 1X/DAY
  24. PILOCARPINE [Concomitant]
     Indication: INTRAOCULAR PRESSURE INCREASED
     Dosage: UNK
  25. LIPITOR [Suspect]
     Dosage: UNK
  26. XALATAN [Suspect]
     Dosage: UNK
  27. TOPROL-XL [Suspect]
     Dosage: UNK
  28. METFORMIN HCL [Suspect]
     Indication: DIABETES MELLITUS
     Dosage: 500 MG, UNK
     Dates: start: 20101018
  29. PLAVIX [Suspect]
     Dosage: UNK
  30. TIMOLOL [Concomitant]
     Indication: ABNORMAL SENSATION IN EYE
     Dosage: 1 GTT, 4X/DAY
  31. LUMIGAN [Concomitant]
     Indication: ABNORMAL SENSATION IN EYE
     Dosage: 1 GTT, 1X/DAY
  32. DIAZEPAM [Concomitant]
     Dosage: 5 MG, UNK
  33. CLOZAPINE [Concomitant]
     Dosage: UNK
  34. FISH OIL [Concomitant]
     Dosage: UNK
  35. FOLIC ACID [Concomitant]
     Dosage: UNK
  36. ADVIL LIQUI-GELS [Suspect]
     Indication: BACK PAIN
     Dosage: 200 MG, AS NEEDED
     Dates: end: 20110301
  37. METOPROLOL TARTRATE [Concomitant]
     Dosage: 25 MG, 2X/DAY

REACTIONS (10)
  - NAUSEA [None]
  - SLEEP DISORDER [None]
  - ASTHENIA [None]
  - SKIN IRRITATION [None]
  - HIP ARTHROPLASTY [None]
  - ABASIA [None]
  - DYSPNOEA [None]
  - VOMITING [None]
  - MYALGIA [None]
  - BACK PAIN [None]
